FAERS Safety Report 7047611-5 (Version None)
Quarter: 2010Q4

REPORT INFORMATION
  Report Type: 
  Country: None (occurrence: None)
  Receive Date: 20101015
  Receipt Date: 20101011
  Transmission Date: 20110411
  Serious: Yes (Hospitalization)
  Sender: FDA-Public Use
  Company Number: FR-BRISTOL-MYERS SQUIBB COMPANY-15331531

PATIENT
  Age: 57 Year
  Sex: Female
  Weight: 67 kg

DRUGS (12)
  1. COUMADIN [Suspect]
     Indication: ANTIPHOSPHOLIPID SYNDROME
     Route: 048
     Dates: start: 20100823, end: 20100902
  2. CELLCEPT [Concomitant]
  3. PLAQUENIL [Concomitant]
  4. CORTANCYL [Concomitant]
  5. STILNOX [Concomitant]
  6. AMLODIPINE [Concomitant]
  7. PRAVASTATIN [Concomitant]
  8. IXPRIM [Concomitant]
     Dosage: IXPRIM (1DF =  1 TABLET) THREE TIMES IF NEEDED,
  9. ATHYMIL [Concomitant]
  10. NEORECORMON [Concomitant]
  11. CACIT D3 [Concomitant]
  12. SMECTA [Concomitant]

REACTIONS (2)
  - HAEMATOMA [None]
  - RENAL FAILURE ACUTE [None]
